FAERS Safety Report 25893245 (Version 1)
Quarter: 2025Q4

REPORT INFORMATION
  Report Type: Report from Study
  Country: BR (occurrence: BR)
  Receive Date: 20251008
  Receipt Date: 20251008
  Transmission Date: 20260118
  Serious: Yes (Other)
  Sender: ABBVIE
  Company Number: BR-ABBOTT-2019A-1303245

PATIENT
  Sex: Female

DRUGS (9)
  1. SYNTHROID [Suspect]
     Active Substance: LEVOTHYROXINE SODIUM
     Indication: Hypothyroidism
     Route: 048
  2. SYNTHROID [Suspect]
     Active Substance: LEVOTHYROXINE SODIUM
     Indication: Hypothyroidism
     Dosage: START DATE: 40 YEARS/ 30 YEARS/ OVER 20 YEARS (SHE COULD NOT SPECIFY)
     Route: 048
  3. SYNTHROID [Suspect]
     Active Substance: LEVOTHYROXINE SODIUM
     Indication: Hypothyroidism
     Dosage: DOSAGE: UNIT DOSE: 1 TABLET, MORNING, FASTING.
     Route: 048
  4. SYNTHROID [Suspect]
     Active Substance: LEVOTHYROXINE SODIUM
     Indication: Hypothyroidism
     Route: 048
  5. HOMEOPATHICS [Concomitant]
     Active Substance: HOMEOPATHICS
     Indication: Blood cholesterol abnormal
  6. HERBALS [Concomitant]
     Active Substance: HERBALS
     Indication: Blood cholesterol abnormal
  7. EVENING PRIMROSE OIL\HERBALS [Concomitant]
     Active Substance: EVENING PRIMROSE OIL\HERBALS
     Indication: Product used for unknown indication
  8. Duplostat [Concomitant]
     Indication: Low density lipoprotein
     Dosage: DAILY DOSE: 1600MG, DOSAGE: UNIT DOSE: 1 CAPSULE, MORNING/ NIGHT, AFTER DINNER.
  9. OMEGA-3 ACIDS [Suspect]
     Active Substance: OMEGA-3 FATTY ACIDS
     Indication: Product used for unknown indication
     Route: 065

REACTIONS (23)
  - Feeling abnormal [Unknown]
  - Amenorrhoea [Unknown]
  - Vessel perforation [Recovered/Resolved]
  - Anaemia [Unknown]
  - Pruritus [Unknown]
  - Weight decreased [Unknown]
  - Hot flush [Unknown]
  - Hypersensitivity [Unknown]
  - Hypoaesthesia [Recovered/Resolved]
  - Nausea [Unknown]
  - Eating disorder [Unknown]
  - Drug titration error [Unknown]
  - Vomiting [Unknown]
  - Leiomyoma [Recovered/Resolved]
  - Neoplasm [Recovered/Resolved]
  - Gastritis [Unknown]
  - Liver disorder [Recovered/Resolved]
  - Migraine [Recovered/Resolved]
  - Abdominal pain upper [Unknown]
  - Drug ineffective [Unknown]
  - Alopecia [Recovered/Resolved]
  - Cold sweat [Unknown]
  - Hormone level abnormal [Unknown]

NARRATIVE: CASE EVENT DATE: 20090101
